FAERS Safety Report 22796773 (Version 4)
Quarter: 2023Q4

REPORT INFORMATION
  Report Type: Spontaneous
  Country: US (occurrence: US)
  Receive Date: 20230808
  Receipt Date: 20231226
  Transmission Date: 20240110
  Serious: No
  Sender: FDA-Public Use
  Company Number: US-SA-SAC20230803000657

PATIENT
  Age: 41 Year
  Sex: Female

DRUGS (2)
  1. DUPIXENT [Suspect]
     Active Substance: DUPILUMAB
     Indication: Dermatitis atopic
     Dosage: 600 MG, 1X
     Route: 058
     Dates: start: 20230701, end: 20230701
  2. DUPIXENT [Suspect]
     Active Substance: DUPILUMAB
     Dosage: 300 MG, QOW
     Route: 058
     Dates: start: 202307, end: 20230923

REACTIONS (13)
  - Limb injury [Unknown]
  - Arthritis [Unknown]
  - Road traffic accident [Unknown]
  - Vision blurred [Recovered/Resolved]
  - Dry eye [Unknown]
  - Arthralgia [Unknown]
  - Eczema [Not Recovered/Not Resolved]
  - Rash [Unknown]
  - Scab [Unknown]
  - Skin exfoliation [Unknown]
  - Pruritus [Unknown]
  - Dry skin [Unknown]
  - Skin swelling [Unknown]

NARRATIVE: CASE EVENT DATE: 20230101
